FAERS Safety Report 6476827-1 (Version None)
Quarter: 2009Q4

REPORT INFORMATION
  Report Type: 
  Country: None (occurrence: None)
  Receive Date: 20091204
  Receipt Date: 20091204
  Transmission Date: 20100525
  Serious: No
  Sender: FDA-Public Use
  Company Number: None

PATIENT
  Age: 51 Year
  Sex: Male
  Weight: 88.4514 kg

DRUGS (1)
  1. CRESTOR [Suspect]
     Indication: LOW DENSITY LIPOPROTEIN INCREASED
     Dosage: ONE DAILY OTHER
     Route: 050
     Dates: start: 20090801, end: 20091203

REACTIONS (9)
  - AMNESIA [None]
  - DYSKINESIA [None]
  - FEAR [None]
  - IMPAIRED WORK ABILITY [None]
  - INSOMNIA [None]
  - LOSS OF LIBIDO [None]
  - MYALGIA [None]
  - NIGHTMARE [None]
  - THINKING ABNORMAL [None]
